FAERS Safety Report 5612244-1 (Version None)
Quarter: 2008Q1

REPORT INFORMATION
  Report Type: 
  Country: None (occurrence: None)
  Receive Date: 20080204
  Receipt Date: 20080122
  Transmission Date: 20080703
  Serious: Yes (Hospitalization)
  Sender: FDA-Public Use
  Company Number: FR-GENENTECH-255058

PATIENT
  Sex: Male
  Weight: 80 kg

DRUGS (5)
  1. AVASTIN [Suspect]
     Indication: COLORECTAL CANCER
     Dosage: 375 MG, UNK
     Route: 042
     Dates: start: 20070523, end: 20070704
  2. AVASTIN [Suspect]
     Dosage: 375 MG, UNKNOWN
     Route: 042
     Dates: start: 20071226
  3. FLUOROURACIL [Concomitant]
     Indication: DRUG USE FOR UNKNOWN INDICATION
  4. FOLINIC ACID [Concomitant]
     Indication: DRUG USE FOR UNKNOWN INDICATION
  5. IRINOTECAN [Concomitant]
     Indication: DRUG USE FOR UNKNOWN INDICATION

REACTIONS (1)
  - JAUNDICE [None]
